FAERS Safety Report 17433467 (Version 2)
Quarter: 2020Q1

REPORT INFORMATION
  Report Type: Other
  Country: FR (occurrence: FR)
  Receive Date: 20200219
  Receipt Date: 20200327
  Transmission Date: 20200409
  Serious: Yes (Other)
  Sender: FDA-Public Use
  Company Number: FR-CELLTRION INC.-2020FR019103

PATIENT

DRUGS (7)
  1. CORTANCYL [Suspect]
     Active Substance: PREDNISONE
     Indication: DERMATOMYOSITIS
     Dosage: 1 DOSAGE FORM, QD (BATCHES TESTED AND FOUND TO BE WITHIN SPECIFICATIONS)
     Route: 048
     Dates: start: 20190202
  2. GAMMANORM [Suspect]
     Active Substance: HUMAN IMMUNOGLOBULIN G
     Dosage: 16 G, EVERY 2 WEEKS
     Route: 058
     Dates: start: 20190122
  3. CORTANCYL [Suspect]
     Active Substance: PREDNISONE
     Dosage: 70 MG, QD
     Route: 048
     Dates: start: 20181227, end: 20190201
  4. GAMMANORM [Suspect]
     Active Substance: HUMAN IMMUNOGLOBULIN G
     Indication: DERMATOMYOSITIS
     Dosage: 16 G, EVERY 2 WEEKS
     Route: 058
     Dates: start: 20190122
  5. GAMMANORM [Suspect]
     Active Substance: HUMAN IMMUNOGLOBULIN G
     Dosage: 16 G, EVERY 2 WEEKS
     Route: 058
     Dates: start: 20190122
  6. GAMMANORM [Suspect]
     Active Substance: HUMAN IMMUNOGLOBULIN G
     Dosage: 16 G, EVERY 2 WEEKS
     Route: 058
     Dates: start: 20190122
  7. TRUXIMA [Suspect]
     Active Substance: RITUXIMAB-ABBS
     Indication: DERMATOMYOSITIS
     Dosage: 1 G EVERY 6 MONTHS
     Route: 042
     Dates: start: 20181228, end: 20200106

REACTIONS (2)
  - Bone infarction [Not Recovered/Not Resolved]
  - Product use in unapproved indication [Unknown]

NARRATIVE: CASE EVENT DATE: 20190724
